FAERS Safety Report 9256930 (Version 2)
Quarter: 2013Q3

REPORT INFORMATION
  Report Type: Spontaneous
  Country: US (occurrence: US)
  Receive Date: 20130426
  Receipt Date: 20130814
  Transmission Date: 20140515
  Serious: Yes (Other)
  Sender: FDA-Public Use
  Company Number: US-ASTRAZENECA-2013SE27629

PATIENT
  Age: 76 Year
  Sex: Female
  Weight: 66.7 kg

DRUGS (8)
  1. NEXIUM [Suspect]
     Indication: DYSPEPSIA
     Dosage: ONCE IN DAY
     Route: 048
     Dates: start: 2000, end: 2010
  2. ADVER [Concomitant]
  3. ATENOLOL [Concomitant]
  4. AMLODIPINE [Concomitant]
     Dosage: 2-5 MG
  5. METFORMIN [Concomitant]
  6. ASPIRIN [Concomitant]
  7. NASONEX [Concomitant]
  8. LANSOPRAZOLE [Concomitant]

REACTIONS (8)
  - Osteonecrosis [Unknown]
  - Osteoporosis [Unknown]
  - Arthralgia [Unknown]
  - Bone disorder [Unknown]
  - Multiple fractures [Unknown]
  - Diabetes mellitus [Unknown]
  - Osteoarthritis [Unknown]
  - Lower limb fracture [Unknown]
